FAERS Safety Report 5905203-2 (Version None)
Quarter: 2008Q3

REPORT INFORMATION
  Report Type: 
  Country: None (occurrence: None)
  Receive Date: 20080909
  Receipt Date: 20080702
  Transmission Date: 20090109
  Serious: Yes (Hospitalization, Other)
  Sender: FDA-Public Use
  Company Number: 163-20785-07100650

PATIENT
  Age: 6 Year
  Sex: Male

DRUGS (7)
  1. THALOMID [Suspect]
     Indication: NEUROBLASTOMA
     Dosage: 50-250MG, DAILY, ORAL ; 250 MG, DAILY, ORAL
     Route: 047
     Dates: start: 20070605, end: 20070928
  2. THALOMID [Suspect]
     Indication: NEUROBLASTOMA
     Dosage: 50-250MG, DAILY, ORAL ; 250 MG, DAILY, ORAL
     Route: 047
     Dates: start: 20071001, end: 20071021
  3. CYCLOPHOSPHAMIDE [Suspect]
     Indication: NEUROBLASTOMA
     Dosage: SEE IMAGE
     Route: 048
     Dates: start: 20070810, end: 20070823
  4. CYCLOPHOSPHAMIDE [Suspect]
     Indication: NEUROBLASTOMA
     Dosage: SEE IMAGE
     Route: 048
     Dates: start: 20070918, end: 20070929
  5. CELECOXIB [Suspect]
     Indication: DRUG USE FOR UNKNOWN INDICATION
     Dates: start: 20070605, end: 20071021
  6. FENOFIBRATE [Suspect]
     Indication: DRUG USE FOR UNKNOWN INDICATION
     Dates: start: 20070605, end: 20071021
  7. ETOPOSIDE [Suspect]
     Indication: NEUROBLASTOMA
     Dosage: 30 MG, DAILY, ALTERNATE MONTHLY W/CYCLOPHOS., ORAL
     Route: 048
     Dates: start: 20071009, end: 20071021

REACTIONS (3)
  - CELLULITIS [None]
  - NEUTROPENIA [None]
  - PNEUMONIA [None]
